FAERS Safety Report 4866641-2 (Version None)
Quarter: 2005Q4

REPORT INFORMATION
  Report Type: 
  Country: None (occurrence: None)
  Receive Date: 20051227
  Receipt Date: 20051221
  Transmission Date: 20060501
  Serious: Yes (Other)
  Sender: FDA-Public Use
  Company Number: US-JNJFOC-20050705960

PATIENT
  Sex: Female

DRUGS (10)
  1. LEVAQUIN [Suspect]
     Indication: BRONCHITIS
     Route: 048
  2. PROZAC [Suspect]
     Indication: DEPRESSION
  3. ALEVE [Suspect]
     Indication: DRUG USE FOR UNKNOWN INDICATION
  4. INSULIN [Concomitant]
  5. HUMALOG [Concomitant]
     Route: 058
  6. ASPIRIN [Concomitant]
     Indication: PROPHYLAXIS
  7. LENTE INSULIN [Concomitant]
  8. DIOVAN [Concomitant]
  9. DICLOFENAC [Concomitant]
  10. PHENTERMINE [Concomitant]

REACTIONS (1)
  - DERMATOMYOSITIS [None]
